FAERS Safety Report 8341034-4 (Version None)
Quarter: 2012Q2

REPORT INFORMATION
  Report Type: 
  Country: None (occurrence: None)
  Receive Date: 20120507
  Receipt Date: 20120427
  Transmission Date: 20120825
  Serious: Yes (Other)
  Sender: FDA-Public Use
  Company Number: US-ASTRAZENECA-2011SE74697

PATIENT
  Age: 53 Year
  Sex: Male
  Weight: 59 kg

DRUGS (14)
  1. IMODIUM [Concomitant]
     Dosage: DAILY
  2. IRON [Concomitant]
  3. FIBERCON [Concomitant]
  4. CLONAZEPAM [Concomitant]
  5. HYDROCORTISONE [Concomitant]
     Dosage: 10 G TWO TABS IN THE MORNING AND ONE TAB IN THE EVENING
  6. OPIUM TINCTURE [Concomitant]
     Indication: PNEUMONIA
     Dosage: 25-30 DROPS, THREE TIMES A DAY
  7. VITAMIN C [Concomitant]
  8. ADRENADOOSC [Concomitant]
     Indication: ADRENAL DISORDER
  9. SEROQUEL [Suspect]
     Route: 048
  10. FLUDROCORTISONE ACETATE [Concomitant]
     Dosage: TWO TIMES A DAY
  11. SEROQUEL [Suspect]
     Indication: BIPOLAR I DISORDER
     Route: 048
     Dates: start: 20080101
  12. TRAMADOL HYDROCHLORIDE [Concomitant]
  13. VITAMIN B-12 [Concomitant]
  14. LEVOFLOXACIN [Concomitant]
     Indication: PNEUMONIA

REACTIONS (12)
  - PNEUMONIA [None]
  - WEIGHT DECREASED [None]
  - INTENTIONAL DRUG MISUSE [None]
  - MALAISE [None]
  - COLON CANCER [None]
  - INFECTION [None]
  - LUNG NEOPLASM MALIGNANT [None]
  - WHITE BLOOD CELL COUNT INCREASED [None]
  - ADRENAL INSUFFICIENCY [None]
  - DIABETES MELLITUS [None]
  - MANIA [None]
  - LUNG INFECTION [None]
